FAERS Safety Report 15993224 (Version 1)
Quarter: 2019Q1

REPORT INFORMATION
  Report Type: Spontaneous
  Country: FR (occurrence: FR)
  Receive Date: 20190222
  Receipt Date: 20190222
  Transmission Date: 20190418
  Serious: Yes (Other)
  Sender: FDA-Public Use
  Company Number: FR-ROCHE-2264487

PATIENT
  Sex: Female

DRUGS (2)
  1. ROACTEMRA [Suspect]
     Active Substance: TOCILIZUMAB
     Route: 042
     Dates: start: 201812
  2. ROACTEMRA [Suspect]
     Active Substance: TOCILIZUMAB
     Indication: TAKAYASU^S ARTERITIS
     Route: 042
     Dates: start: 2012, end: 2016

REACTIONS (10)
  - Suicidal ideation [Unknown]
  - Nausea [Unknown]
  - Vertigo [Unknown]
  - Vision blurred [Unknown]
  - Fatigue [Unknown]
  - Intentional product use issue [Unknown]
  - Off label use [Unknown]
  - Dissociative identity disorder [Unknown]
  - Motion sickness [Unknown]
  - Migraine [Unknown]

NARRATIVE: CASE EVENT DATE: 2012
